FAERS Safety Report 8386695-9 (Version None)
Quarter: 2012Q2

REPORT INFORMATION
  Report Type: 
  Country: None (occurrence: None)
  Receive Date: 20120525
  Receipt Date: 20120514
  Transmission Date: 20120825
  Serious: Yes (Disabling)
  Sender: FDA-Public Use
  Company Number: GB-MYLANLABS-2012S1009869

PATIENT
  Age: 43 Year
  Sex: Female
  Weight: 65 kg

DRUGS (3)
  1. ACETAMINOPHEN AND CODEINE PHOSPHATE [Concomitant]
     Indication: BACK PAIN
     Dates: start: 20120208
  2. CITALOPRAM HYDROBROMIDE [Suspect]
     Indication: ANXIETY
     Route: 048
     Dates: start: 20120405, end: 20120406
  3. DIAZEPAM [Concomitant]
     Indication: ANXIETY
     Route: 048
     Dates: start: 20120327

REACTIONS (3)
  - HYPERHIDROSIS [None]
  - DISORIENTATION [None]
  - PALPITATIONS [None]
